FAERS Safety Report 10463671 (Version 1)
Quarter: 2014Q3

REPORT INFORMATION
  Report Type: Spontaneous
  Country: GB (occurrence: GB)
  Receive Date: 20140919
  Receipt Date: 20140919
  Transmission Date: 20150326
  Serious: Yes (Other)
  Sender: FDA-Public Use
  Company Number: GB-IROKO PRODUCTS LTD-GB-I09001-14-00197

PATIENT
  Age: 35 Year
  Sex: Male

DRUGS (4)
  1. DIURETICS [Concomitant]
     Active Substance: UNSPECIFIED INGREDIENT
     Indication: NEPHROTIC SYNDROME
     Dosage: HIGH DOSE.
     Route: 065
     Dates: start: 2011
  2. ANGIOTENSIN RECEPTOR BLOCKER [Concomitant]
     Indication: NEPHROTIC SYNDROME
     Dosage: MAXIMAL DOSE.
     Route: 065
     Dates: start: 2011
  3. INDOMETHACIN AMBIGUOUS [Suspect]
     Active Substance: INDOMETHACIN
     Indication: NEPHROTIC SYNDROME
     Route: 065
     Dates: start: 2011
  4. ANGIOTENSIN CONVERTING ENZYME INHIBITOR [Concomitant]
     Indication: NEPHROTIC SYNDROME
     Dosage: MAXIMAL DOSE.
     Route: 065
     Dates: start: 2011

REACTIONS (3)
  - Colitis microscopic [Unknown]
  - Crohn^s disease [Recovered/Resolved]
  - Off label use [Unknown]

NARRATIVE: CASE EVENT DATE: 2011
